FAERS Safety Report 4565516-6 (Version None)
Quarter: 2005Q1

REPORT INFORMATION
  Report Type: 
  Country: None (occurrence: None)
  Receive Date: 20050131
  Receipt Date: 20050107
  Transmission Date: 20050727
  Serious: Yes (Other)
  Sender: FDA-Public Use
  Company Number: NL-GLAXOSMITHKLINE-B0364369A

PATIENT
  Age: 58 Year
  Sex: Female
  Weight: 90 kg

DRUGS (1)
  1. ZYBAN [Suspect]
     Indication: SMOKING CESSATION THERAPY
     Dosage: 150MG TWICE PER DAY
     Route: 065
     Dates: start: 20041201, end: 20050103

REACTIONS (5)
  - ABNORMAL BEHAVIOUR [None]
  - AFFECT LABILITY [None]
  - DELUSION [None]
  - PERSONALITY CHANGE [None]
  - PSYCHOTIC DISORDER [None]
